FAERS Safety Report 5715315-4 (Version None)
Quarter: 2008Q2

REPORT INFORMATION
  Report Type: 
  Country: None (occurrence: None)
  Receive Date: 20080423
  Receipt Date: 20080411
  Transmission Date: 20081010
  Serious: Yes (Other)
  Sender: FDA-Public Use
  Company Number: CH-PFIZER INC-2008028053

PATIENT
  Sex: Female
  Weight: 50 kg

DRUGS (4)
  1. LYRICA [Suspect]
     Route: 048
     Dates: start: 20080130, end: 20080201
  2. TRAMADOL HCL [Concomitant]
     Route: 048
  3. AMITRIPTYLINE HYDROCHLORIDE [Concomitant]
     Route: 048
     Dates: start: 20071001
  4. ZOLPIDEM [Concomitant]
     Route: 048
     Dates: start: 20060101

REACTIONS (3)
  - DIZZINESS [None]
  - NAUSEA [None]
  - RAYNAUD'S PHENOMENON [None]
